FAERS Safety Report 17864602 (Version 1)
Quarter: 2020Q2

REPORT INFORMATION
  Report Type: Report from Study
  Country: CN (occurrence: CN)
  Receive Date: 20200605
  Receipt Date: 20200605
  Transmission Date: 20200714
  Serious: Yes (Other)
  Sender: FDA-Public Use
  Company Number: CN-ASTRAZENECA-2020SE70043

PATIENT
  Age: 62 Year
  Sex: Male

DRUGS (3)
  1. BYETTA [Suspect]
     Active Substance: EXENATIDE
     Indication: DIABETES MELLITUS
     Route: 058
     Dates: start: 20200426, end: 20200525
  2. BYETTA [Suspect]
     Active Substance: EXENATIDE
     Indication: WEIGHT DECREASED
     Route: 058
     Dates: start: 20200426, end: 20200525
  3. DEGLUDEC [Concomitant]
     Indication: DIABETES MELLITUS
     Dosage: 3ML \ 300 UNITS, 26 UNITS PER DAY
     Route: 058

REACTIONS (8)
  - Chronic kidney disease [Unknown]
  - Blood creatinine increased [Recovering/Resolving]
  - Acute kidney injury [Unknown]
  - Renal impairment [Unknown]
  - Vomiting [Recovered/Resolved]
  - Mood altered [Recovered/Resolved]
  - Nausea [Recovered/Resolved]
  - Wrong technique in product usage process [Recovered/Resolved]

NARRATIVE: CASE EVENT DATE: 20200525
